FAERS Safety Report 11814371 (Version 1)
Quarter: 2015Q4

REPORT INFORMATION
  Report Type: Spontaneous
  Country: SG (occurrence: SG)
  Receive Date: 20151209
  Receipt Date: 20151209
  Transmission Date: 20160305
  Serious: Yes (Other)
  Sender: FDA-Public Use
  Company Number: SG-BAYER-2015-480494

PATIENT
  Age: 48 Year
  Sex: Male

DRUGS (5)
  1. PANADOL [Suspect]
     Active Substance: ACETAMINOPHEN
  2. ACETYLSALICYLIC ACID (} 100 MG) [Suspect]
     Active Substance: ASPIRIN
  3. AMPICILLIN [Suspect]
     Active Substance: AMPICILLIN
  4. VOLTAREN [Suspect]
     Active Substance: DICLOFENAC SODIUM
  5. MEFENAMIC-ACID [Suspect]
     Active Substance: MEFENAMIC ACID

REACTIONS (1)
  - Periorbital oedema [Unknown]

NARRATIVE: CASE EVENT DATE: 20050101
